FAERS Safety Report 6659578-X (Version None)
Quarter: 2010Q1

REPORT INFORMATION
  Report Type: 
  Country: None (occurrence: None)
  Receive Date: 20100330
  Receipt Date: 20100223
  Transmission Date: 20100710
  Serious: Yes (Hospitalization, Other)
  Sender: FDA-Public Use
  Company Number: PHHY2010DE16182

PATIENT
  Sex: Male

DRUGS (5)
  1. EXTAVIA [Suspect]
     Indication: MULTIPLE SCLEROSIS
     Dosage: 250 UG/ML, QOD
     Route: 058
  2. BACLOFEN [Concomitant]
     Indication: MUSCLE SPASTICITY
  3. SULPIRID [Concomitant]
     Dosage: 1-1/2-0
  4. PARACETAMOL [Concomitant]
     Dosage: 1-1-1
  5. NASAL SPRAY [Concomitant]

REACTIONS (17)
  - AFFECTIVE DISORDER [None]
  - BACK PAIN [None]
  - BODY TEMPERATURE INCREASED [None]
  - C-REACTIVE PROTEIN INCREASED [None]
  - EXTENSOR PLANTAR RESPONSE [None]
  - GAIT DISTURBANCE [None]
  - GAMMA-GLUTAMYLTRANSFERASE INCREASED [None]
  - GENERAL PHYSICAL HEALTH DETERIORATION [None]
  - HYPERTONIA [None]
  - INFLUENZA [None]
  - MONOPARESIS [None]
  - MUSCULAR WEAKNESS [None]
  - MUSCULOSKELETAL STIFFNESS [None]
  - NASOPHARYNGITIS [None]
  - PAIN [None]
  - SECONDARY PROGRESSIVE MULTIPLE SCLEROSIS [None]
  - UHTHOFF'S PHENOMENON [None]
